FAERS Safety Report 6772513-9 (Version None)
Quarter: 2010Q2

REPORT INFORMATION
  Report Type: 
  Country: None (occurrence: None)
  Receive Date: 20100616
  Receipt Date: 20091006
  Transmission Date: 20101027
  Serious: No
  Sender: FDA-Public Use
  Company Number: US-ASTRAZENECA-2009SE12870

PATIENT
  Age: 39 Year
  Sex: Female
  Weight: 77.1 kg

DRUGS (3)
  1. PULMICORT FLEXHALER [Suspect]
     Indication: ASTHMA
     Dosage: TOTAL DAILY DOSE 180 MCG, 2 PUFFS
     Route: 055
     Dates: start: 20081201, end: 20090910
  2. PULMICORT FLEXHALER [Suspect]
     Dosage: 1 PUFF
     Route: 055
     Dates: start: 20090101
  3. COMBIVENT [Concomitant]

REACTIONS (3)
  - COUGH [None]
  - PRODUCT DEPOSIT [None]
  - RETCHING [None]
